FAERS Safety Report 4541119-4 (Version None)
Quarter: 2004Q4

REPORT INFORMATION
  Report Type: 
  Country: None (occurrence: None)
  Receive Date: 20041228
  Receipt Date: 20041213
  Transmission Date: 20050328
  Serious: Yes (Hospitalization)
  Sender: FDA-Public Use
  Company Number: F01200403436

PATIENT
  Age: 58 Year
  Sex: Male

DRUGS (7)
  1. OXALIPLATIN - SOLUTION - 234 MG [Suspect]
     Indication: COLON CANCER
     Dosage: 234 MG Q3W INTRAVENOUS NOS
     Route: 042
     Dates: start: 20041004, end: 20041004
  2. OXALIPLATIN - SOLUTION - 234 MG [Suspect]
     Indication: SURGERY
     Dosage: 234 MG Q3W INTRAVENOUS NOS
     Route: 042
     Dates: start: 20041004, end: 20041004
  3. CAPECITABINE - TABLET - 1800 MG [Suspect]
     Dosage: 1800 MG TWICE A DAY PER ORAL FROM D1 TO D15, Q3W ORAL
     Route: 048
     Dates: start: 20040913, end: 20040915
  4. ATIVAN [Concomitant]
  5. ESTROGEL [Concomitant]
  6. SYNTHROID [Concomitant]
  7. LOSEC (OMEPRAZOLE) [Concomitant]

REACTIONS (6)
  - EATING DISORDER [None]
  - FLATULENCE [None]
  - GENERAL PHYSICAL HEALTH DETERIORATION [None]
  - HAEMOGLOBIN DECREASED [None]
  - NAUSEA [None]
  - VOMITING [None]
